FAERS Safety Report 4830223-9 (Version None)
Quarter: 2005Q4

REPORT INFORMATION
  Report Type: 
  Country: None (occurrence: None)
  Receive Date: 20051114
  Receipt Date: 20051103
  Transmission Date: 20060501
  Serious: Yes (Life-Threatening, Other)
  Sender: FDA-Public Use
  Company Number: 2005151298

PATIENT
  Age: 77 Year
  Sex: Female

DRUGS (1)
  1. CELECOXIB (CELECOXIB) [Suspect]
     Indication: ARTHRITIS
     Dosage: 200 MG (200 MG, 1 IN 1 D), ORAL
     Route: 048
     Dates: start: 20040701

REACTIONS (1)
  - SIDEROBLASTIC ANAEMIA [None]
